FAERS Safety Report 9778286 (Version 1)
Quarter: 2013Q4

REPORT INFORMATION
  Report Type: Spontaneous
  Country: IL (occurrence: IL)
  Receive Date: 20131223
  Receipt Date: 20131223
  Transmission Date: 20140711
  Serious: Yes (Hospitalization)
  Sender: FDA-Public Use
  Company Number: IL-JNJFOC-20131212019

PATIENT
  Age: 78 Year
  Sex: Male

DRUGS (9)
  1. XARELTO [Suspect]
     Indication: CEREBROVASCULAR ACCIDENT PROPHYLAXIS
     Route: 048
     Dates: start: 201302, end: 201306
  2. XARELTO [Suspect]
     Indication: ATRIAL FIBRILLATION
     Route: 048
     Dates: start: 201302, end: 201306
  3. ASPIRIN [Concomitant]
     Route: 065
  4. INSULIN [Concomitant]
     Route: 065
  5. LIPITOR [Concomitant]
     Route: 065
  6. NORVASC [Concomitant]
     Route: 065
  7. CARDILOC [Concomitant]
     Route: 065
  8. FUSID [Concomitant]
     Route: 065
  9. CLEXANE [Concomitant]
     Route: 065

REACTIONS (3)
  - Haemorrhagic transformation stroke [Recovered/Resolved with Sequelae]
  - Cerebral infarction [Recovered/Resolved with Sequelae]
  - Drug ineffective [Unknown]
